FAERS Safety Report 19009121 (Version 1)
Quarter: 2021Q1

REPORT INFORMATION
  Report Type: Spontaneous
  Country: SE (occurrence: SE)
  Receive Date: 20210315
  Receipt Date: 20210315
  Transmission Date: 20210420
  Serious: Yes (Congenital Anomaly, Other)
  Sender: FDA-Public Use
  Company Number: SE-CURIUM-2008000425

PATIENT
  Sex: Male

DRUGS (2)
  1. SODIUM IODIDE I 131 [Suspect]
     Active Substance: SODIUM IODIDE I-131
     Indication: BASEDOW^S DISEASE
     Dosage: 500 MBQ, UNK
     Route: 064
     Dates: start: 1987, end: 1987
  2. THIAMAZOLE [Concomitant]
     Active Substance: METHIMAZOLE
     Indication: HYPERTHYROIDISM
     Route: 064

REACTIONS (4)
  - Foetal exposure during pregnancy [Recovered/Resolved]
  - Mental impairment [Recovered/Resolved]
  - Temperature regulation disorder [Recovered/Resolved]
  - Congenital hypothyroidism [Not Recovered/Not Resolved]

NARRATIVE: CASE EVENT DATE: 199510
